FAERS Safety Report 7496063-X (Version None)
Quarter: 2011Q2

REPORT INFORMATION
  Report Type: 
  Country: None (occurrence: None)
  Receive Date: 20110513
  Receipt Date: 20110429
  Transmission Date: 20111010
  Serious: Yes (Death)
  Sender: FDA-Public Use
  Company Number: TPA2011A01958

PATIENT
  Age: 4 Decade
  Sex: Male

DRUGS (1)
  1. ACTOPLUS MET [Suspect]
     Indication: DIABETES MELLITUS

REACTIONS (1)
  - LACTIC ACIDOSIS [None]
